FAERS Safety Report 17408950 (Version 1)
Quarter: 2020Q1

REPORT INFORMATION
  Report Type: Report from Study
  Country: US (occurrence: US)
  Receive Date: 20200212
  Receipt Date: 20200212
  Transmission Date: 20200409
  Serious: Yes (Hospitalization, Other)
  Sender: FDA-Public Use
  Company Number: US-AMGEN-USASL2019163610

PATIENT
  Age: 71 Year
  Sex: Female

DRUGS (2)
  1. LETROZOLE. [Concomitant]
     Active Substance: LETROZOLE
     Indication: PRODUCT USED FOR UNKNOWN INDICATION
     Route: 065
  2. XGEVA [Suspect]
     Active Substance: DENOSUMAB
     Indication: PROPHYLAXIS
     Dosage: 120 MILLIGRAM, QMO
     Route: 065
     Dates: start: 201907, end: 20190920

REACTIONS (17)
  - Musculoskeletal discomfort [Unknown]
  - Alopecia [Unknown]
  - Lip erythema [Recovered/Resolved]
  - Breast discomfort [Unknown]
  - Neuralgia [Unknown]
  - Dry mouth [Unknown]
  - Musculoskeletal stiffness [Unknown]
  - Muscle tightness [Unknown]
  - Dermatitis [Recovered/Resolved]
  - Breast discharge [Unknown]
  - Muscle strain [Unknown]
  - Breast pain [Unknown]
  - Breast cancer metastatic [Unknown]
  - Discomfort [Unknown]
  - Thirst [Unknown]
  - Toothache [Unknown]
  - Hyperaesthesia teeth [Unknown]

NARRATIVE: CASE EVENT DATE: 2019
